FAERS Safety Report 7694015-8 (Version None)
Quarter: 2011Q3

REPORT INFORMATION
  Report Type: 
  Country: None (occurrence: None)
  Receive Date: 20110819
  Receipt Date: 20110815
  Transmission Date: 20111222
  Serious: Yes (Hospitalization)
  Sender: FDA-Public Use
  Company Number: US-GLAXOSMITHKLINE-A0939438A

PATIENT
  Age: 50 Year
  Sex: Male
  Weight: 98.8 kg

DRUGS (3)
  1. OFATUMUMAB [Suspect]
     Indication: CHRONIC LYMPHOCYTIC LEUKAEMIA
     Dosage: 1000MG SEE DOSAGE TEXT
     Route: 042
     Dates: start: 20110309, end: 20110603
  2. FLUDARABINE PHOSPHATE [Suspect]
     Indication: CHRONIC LYMPHOCYTIC LEUKAEMIA
     Dosage: 55MG SEE DOSAGE TEXT
     Route: 042
     Dates: start: 20110309, end: 20110603
  3. CYCLOPHOSPHAMIDE [Suspect]
     Indication: CHRONIC LYMPHOCYTIC LEUKAEMIA
     Dosage: 550MG SEE DOSAGE TEXT
     Route: 042
     Dates: start: 20110309, end: 20110603

REACTIONS (3)
  - SYNCOPE [None]
  - PRESYNCOPE [None]
  - DEHYDRATION [None]
